FAERS Safety Report 9422849 (Version 3)
Quarter: 2013Q4

REPORT INFORMATION
  Report Type: Spontaneous
  Country: US (occurrence: None)
  Receive Date: 20130724
  Receipt Date: 20131003
  Transmission Date: 20140711
  Serious: Yes (Other)
  Sender: FDA-Public Use
  Company Number: US-JNJFOC-20130710695

PATIENT
  Sex: 0

DRUGS (2)
  1. DECITABINE [Suspect]
     Indication: NEOPLASM
     Route: 042
  2. DECITABINE [Suspect]
     Indication: LYMPHOMA
     Route: 042

REACTIONS (2)
  - Infection [None]
  - Off label use [None]
